FAERS Safety Report 9894359 (Version 1)
Quarter: 2014Q1

REPORT INFORMATION
  Report Type: Report from Study
  Country: CO (occurrence: CO)
  Receive Date: 20140213
  Receipt Date: 20140213
  Transmission Date: 20141002
  Serious: Yes (Other)
  Sender: FDA-Public Use
  Company Number: CO-BAYER-2014-018484

PATIENT
  Age: 48 Year
  Sex: Female

DRUGS (1)
  1. BETAFERON [Suspect]
     Indication: MULTIPLE SCLEROSIS
     Dosage: UNK
     Route: 058
     Dates: start: 20080101

REACTIONS (7)
  - Hepatic steatosis [None]
  - Hepatic enzyme increased [None]
  - Hepatomegaly [None]
  - Asthenia [None]
  - Decreased appetite [None]
  - Abdominal pain [None]
  - Nausea [None]
